FAERS Safety Report 7275260-2 (Version None)
Quarter: 2011Q1

REPORT INFORMATION
  Report Type: 
  Country: None (occurrence: None)
  Receive Date: 20110204
  Receipt Date: 20110131
  Transmission Date: 20110831
  Serious: Yes (Death, Other)
  Sender: FDA-Public Use
  Company Number: PHHY2009DK57885

PATIENT
  Sex: Female

DRUGS (2)
  1. ZOMETA [Suspect]
     Indication: METASTASES TO BONE
     Dosage: 4 MG, TIW
     Route: 042
     Dates: start: 20050531, end: 20060424
  2. CEF CURE [Concomitant]
     Dosage: UNK
     Dates: start: 20050531, end: 20060824

REACTIONS (3)
  - OSTEONECROSIS OF JAW [None]
  - INFECTION [None]
  - NEOPLASM MALIGNANT [None]
